FAERS Safety Report 7108109-9 (Version None)
Quarter: 2010Q4

REPORT INFORMATION
  Report Type: 
  Country: None (occurrence: None)
  Receive Date: 20101117
  Receipt Date: 20101108
  Transmission Date: 20110411
  Serious: Yes (Hospitalization)
  Sender: FDA-Public Use
  Company Number: SE-ASTRAZENECA-2010SE53355

PATIENT
  Age: 48 Year
  Sex: Male

DRUGS (7)
  1. MEROPENEM [Suspect]
     Route: 042
     Dates: start: 20100501, end: 20100525
  2. METHOTREXATE [Suspect]
     Dates: end: 20100429
  3. CLAFORAN [Suspect]
     Dates: start: 20100429, end: 20100501
  4. METRONIDAZOL ACTAVIS [Suspect]
     Dates: start: 20100522, end: 20100525
  5. DALACIN [Suspect]
     Dates: start: 20100429, end: 20100501
  6. FELODIPIN ACTAVIS [Concomitant]
  7. ENALAPRIL ACTAVIS [Concomitant]

REACTIONS (8)
  - ABSCESS [None]
  - BACTERIAL INFECTION [None]
  - CLOSTRIDIUM DIFFICILE COLITIS [None]
  - GAMMA-GLUTAMYLTRANSFERASE INCREASED [None]
  - PRURITUS [None]
  - PSOAS ABSCESS [None]
  - RASH [None]
  - STAPHYLOCOCCAL INFECTION [None]
